FAERS Safety Report 14660606 (Version 2)
Quarter: 2018Q2

REPORT INFORMATION
  Report Type: Spontaneous
  Country: US (occurrence: US)
  Receive Date: 20180320
  Receipt Date: 20180404
  Transmission Date: 20180711
  Serious: Yes (Hospitalization, Other)
  Sender: FDA-Public Use
  Company Number: US-PFIZER INC-2018112540

PATIENT
  Sex: Female
  Weight: 120.2 kg

DRUGS (5)
  1. LYRICA [Suspect]
     Active Substance: PREGABALIN
     Indication: FIBROMYALGIA
     Dosage: STARTING DOSAGE OF 100MG CAPSULES TAKEN BY MOUTH TWICE DAILY
     Route: 048
  2. LYRICA [Suspect]
     Active Substance: PREGABALIN
     Indication: NEURALGIA
     Dosage: 300MG CAPSULE TWICE A DAY BY MOUTH
     Route: 048
  3. VICTOZA [Concomitant]
     Active Substance: LIRAGLUTIDE
     Indication: DIABETES MELLITUS
     Dosage: 1.8 SUBCUTANEOUS INJECTION VIA PEN INTO THE STOMACH DAILY
     Route: 058
     Dates: start: 2017
  4. LYRICA [Suspect]
     Active Substance: PREGABALIN
     Indication: DIABETIC NEUROPATHY
     Dosage: 150 MG, 2X/DAY
  5. LYRICA [Suspect]
     Active Substance: PREGABALIN
     Dosage: 225MG FROM THE SAMPLES IN THE MORNING AND THEN 150MG FROM THE SAMPLES AT NIGHT.

REACTIONS (10)
  - Balance disorder [Unknown]
  - Muscle spasms [Unknown]
  - Diabetes mellitus [Unknown]
  - Drug effect incomplete [Unknown]
  - Fall [Unknown]
  - Arthritis [Unknown]
  - Intentional product misuse [Unknown]
  - Gait disturbance [Unknown]
  - Vertigo [Unknown]
  - Weight abnormal [Not Recovered/Not Resolved]

NARRATIVE: CASE EVENT DATE: 2017
